FAERS Safety Report 9347570 (Version 1)
Quarter: 2013Q2

REPORT INFORMATION
  Report Type: Spontaneous
  Country: FR (occurrence: FR)
  Receive Date: 20130614
  Receipt Date: 20130614
  Transmission Date: 20140414
  Serious: Yes (Hospitalization, Other)
  Sender: FDA-Public Use
  Company Number: FR-009507513-1306FRA002852

PATIENT
  Age: 34 Year
  Sex: Female

DRUGS (1)
  1. TEMODAL [Suspect]
     Indication: OLIGOASTROCYTOMA
     Dosage: 285 MG, QD
     Dates: start: 20110429

REACTIONS (3)
  - Visual acuity reduced [Unknown]
  - Optic neuritis [Unknown]
  - Visual field defect [Unknown]
